FAERS Safety Report 5634835-4 (Version None)
Quarter: 2008Q1

REPORT INFORMATION
  Report Type: 
  Country: None (occurrence: None)
  Receive Date: 20080222
  Receipt Date: 20080214
  Transmission Date: 20080703
  Serious: Yes (Hospitalization, Other)
  Sender: FDA-Public Use
  Company Number: NL-PURDUE-USA_2008_0031314

PATIENT
  Age: 41 Year
  Sex: Male

DRUGS (7)
  1. CHLORHEXIDINE GLUCONATE [Suspect]
     Indication: INFECTION PROPHYLAXIS
     Dosage: UNK, UNK
     Route: 066
  2. ROCURONIUM BROMIDE [Concomitant]
     Dosage: UNK, UNK
  3. PROPOFOL [Concomitant]
     Dosage: 200 MG, UNK
  4. ESKETAMINE [Concomitant]
     Dosage: 10 MG, UNK
     Route: 042
  5. REMIFENTANIL [Concomitant]
  6. IODINE [Concomitant]
     Route: 061
  7. LIDOCAINE [Concomitant]
     Route: 066

REACTIONS (1)
  - ANAPHYLACTIC REACTION [None]
